FAERS Safety Report 6147366-2 (Version None)
Quarter: 2009Q2

REPORT INFORMATION
  Report Type: 
  Country: None (occurrence: None)
  Receive Date: 20090408
  Receipt Date: 20090330
  Transmission Date: 20091009
  Serious: Yes (Hospitalization)
  Sender: FDA-Public Use
  Company Number: JP-WYE-H08490309

PATIENT
  Sex: Male
  Weight: 49 kg

DRUGS (9)
  1. ZOSYN [Suspect]
     Indication: PNEUMONIA BACTERIAL
     Route: 042
     Dates: start: 20081225, end: 20081230
  2. DIOVAN [Concomitant]
     Indication: HYPERTENSION
     Route: 048
  3. CYANOCOBALAMIN [Concomitant]
     Indication: NEUROPATHY PERIPHERAL
     Route: 048
  4. NOVORAPID [Concomitant]
     Indication: DIABETES MELLITUS
     Route: 058
  5. ATELEC [Concomitant]
     Indication: HYPERTENSION
     Route: 048
  6. FINIBAX [Suspect]
     Indication: PNEUMONIA BACTERIAL
     Route: 042
     Dates: start: 20090103, end: 20090114
  7. RENIVACE [Concomitant]
     Indication: HYPERTENSION
     Route: 048
  8. KINEDAK [Concomitant]
     Indication: DIABETIC NEUROPATHY
     Route: 048
  9. LIPITOR [Concomitant]
     Indication: HYPERLIPIDAEMIA
     Route: 048

REACTIONS (1)
  - INTERSTITIAL LUNG DISEASE [None]
